FAERS Safety Report 7874094-5 (Version None)
Quarter: 2011Q4

REPORT INFORMATION
  Report Type: 
  Country: None (occurrence: None)
  Receive Date: 20111017
  Receipt Date: 20110202
  Transmission Date: 20120403
  Serious: Yes (Hospitalization)
  Sender: FDA-Public Use
  Company Number: 2011S1000094(0)

PATIENT
  Age: 76 Year
  Sex: Female

DRUGS (4)
  1. BLOOD PRESSURE MEDICINE [Concomitant]
  2. DARVOCET-N 100 [Suspect]
     Indication: BACK PAIN
     Dosage: AS REQUIRED, ORAL
     Route: 048
     Dates: start: 19890101, end: 20101101
  3. ACETAMINOPHEN [Concomitant]
  4. CHOLESTEROL MEDICINE [Concomitant]

REACTIONS (4)
  - VISION BLURRED [None]
  - SYNCOPE [None]
  - VISUAL IMPAIRMENT [None]
  - DYSPHORIA [None]
